FAERS Safety Report 11801575 (Version 1)
Quarter: 2015Q4

REPORT INFORMATION
  Report Type: Spontaneous
  Country: US (occurrence: US)
  Receive Date: 20151204
  Receipt Date: 20151204
  Transmission Date: 20160305
  Serious: No
  Sender: FDA-Public Use
  Company Number: US-ASTRAZENECA-2015SF18792

PATIENT
  Sex: Female

DRUGS (2)
  1. DALIRESP [Suspect]
     Active Substance: ROFLUMILAST
     Indication: CHRONIC OBSTRUCTIVE PULMONARY DISEASE
     Route: 048
  2. BRILINTA [Suspect]
     Active Substance: TICAGRELOR
     Route: 048

REACTIONS (4)
  - Weight decreased [Unknown]
  - Gait disturbance [Unknown]
  - Haemorrhage [Unknown]
  - Bowel movement irregularity [Unknown]
